FAERS Safety Report 8857531 (Version 1)
Quarter: 2012Q4

REPORT INFORMATION
  Report Type: 
  Country: US (occurrence: US)
  Receive Date: 20121024
  Receipt Date: 20121024
  Transmission Date: 20130627
  Serious: Yes (Hospitalization)
  Sender: FDA-Public Use
  Company Number: US-GLAXOSMITHKLINE-A0998462A

PATIENT
  Sex: Female

DRUGS (1)
  1. HORIZANT [Suspect]
     Dosage: 600MG Unknown
     Dates: end: 20120424

REACTIONS (1)
  - Multiple fractures [Unknown]
